FAERS Safety Report 17430741 (Version 2)
Quarter: 2020Q1

REPORT INFORMATION
  Report Type: Report from Study
  Country: US (occurrence: US)
  Receive Date: 20200218
  Receipt Date: 20200324
  Transmission Date: 20200409
  Serious: Yes (Other)
  Sender: FDA-Public Use
  Company Number: US-BAYER-2020-013041

PATIENT
  Age: 45 Year
  Sex: Female

DRUGS (4)
  1. STIVARGA [Suspect]
     Active Substance: REGORAFENIB
     Indication: COLORECTAL CANCER
     Dosage: 40 MG, QID; 21 DAYS ON, 7 DAYS OFF
     Dates: start: 202002
  2. STIVARGA [Suspect]
     Active Substance: REGORAFENIB
     Indication: COLORECTAL CANCER
     Dosage: 40 MG, TID
     Route: 048
     Dates: start: 202002
  3. STIVARGA [Suspect]
     Active Substance: REGORAFENIB
     Indication: COLORECTAL CANCER
     Dosage: 40 MG, BID
     Route: 048
     Dates: start: 20200111
  4. YTTRIUM (90 Y) [Suspect]
     Active Substance: YTTRIUM CHLORIDE Y-90
     Dosage: UNK

REACTIONS (10)
  - Nausea [Recovering/Resolving]
  - Asthenia [None]
  - Neuropathy peripheral [Not Recovered/Not Resolved]
  - Diaphragmalgia [Recovering/Resolving]
  - Dyspnoea [Recovering/Resolving]
  - Fatigue [Not Recovered/Not Resolved]
  - Off label use [None]
  - Inappropriate schedule of product administration [None]
  - Musculoskeletal chest pain [Recovering/Resolving]
  - Asthenia [Not Recovered/Not Resolved]
